FAERS Safety Report 16042380 (Version 1)
Quarter: 2019Q1

REPORT INFORMATION
  Report Type: Spontaneous
  Country: JP (occurrence: JP)
  Receive Date: 20190306
  Receipt Date: 20190306
  Transmission Date: 20190418
  Serious: Yes (Hospitalization, Other)
  Sender: FDA-Public Use
  Company Number: JP-SA-2019SA053436

PATIENT
  Age: 21 Year
  Sex: Female

DRUGS (25)
  1. METHYLPREDNISOLONE. [Suspect]
     Active Substance: METHYLPREDNISOLONE
     Dosage: 1 G, QD, THEN HIGH-DOSE PULSE MPSL THERAPY
  2. BECLOMETHASONE [BECLOMETASONE] [Suspect]
     Active Substance: BECLOMETHASONE
     Indication: GRAFT VERSUS HOST DISEASE IN GASTROINTESTINAL TRACT
  3. METHYLPREDNISOLONE. [Suspect]
     Active Substance: METHYLPREDNISOLONE
     Indication: GRAFT VERSUS HOST DISEASE IN GASTROINTESTINAL TRACT
     Dosage: 2 MG/KG, QD
  4. PREDNISONE. [Suspect]
     Active Substance: PREDNISONE
     Indication: GRAFT VERSUS HOST DISEASE IN GASTROINTESTINAL TRACT
  5. VORICONAZOLE. [Concomitant]
     Active Substance: VORICONAZOLE
  6. CYCLOSPORIN A [Concomitant]
     Active Substance: CYCLOSPORINE
     Dosage: RESUMED
  7. CEFEPIME [Concomitant]
     Active Substance: CEFEPIME HYDROCHLORIDE
     Indication: FEBRILE NEUTROPENIA
  8. FENTANYL. [Concomitant]
     Active Substance: FENTANYL
     Indication: GRAFT VERSUS HOST DISEASE IN GASTROINTESTINAL TRACT
     Dosage: DOSE ESCALATION OF FENTANYL
  9. ANTI-THYMOCYTE GLOBULIN (RABBIT) NOS [Suspect]
     Active Substance: LAPINE T-LYMPHOCYTE IMMUNE GLOBULIN
     Dosage: 1 MG/KG, QD;ADMINISTERED ON DAYS 99 AFTER TRANSPLANTATION
  10. CEFEPIME [Concomitant]
     Active Substance: CEFEPIME HYDROCHLORIDE
     Indication: PYREXIA
  11. AMPHOTERICIN B. [Concomitant]
     Active Substance: AMPHOTERICIN B
  12. TACROLIMUS. [Concomitant]
     Active Substance: TACROLIMUS
     Indication: GRAFT VERSUS HOST DISEASE IN GASTROINTESTINAL TRACT
  13. METHYLPREDNISOLONE. [Suspect]
     Active Substance: METHYLPREDNISOLONE
     Dosage: 75 MG, QD
  14. METHYLPREDNISOLONE. [Suspect]
     Active Substance: METHYLPREDNISOLONE
     Dosage: UNK;SECOND HIGH-DOSE-PULSE MPSL THERAPY
  15. ANTI-THYMOCYTE GLOBULIN (RABBIT) NOS [Suspect]
     Active Substance: LAPINE T-LYMPHOCYTE IMMUNE GLOBULIN
     Indication: ACUTE GRAFT VERSUS HOST DISEASE
     Dosage: 1 MG/KG, QD; ADMINISTERED ON DAYS 105 AFTER TRANSPLANTATION
  16. CYCLOPHOSPHAMIDE. [Concomitant]
     Active Substance: CYCLOPHOSPHAMIDE
     Indication: BONE MARROW CONDITIONING REGIMEN
     Dosage: 120 MG/KG; CONDITIONING REGIMEN
  17. LEVOFLOXACIN. [Concomitant]
     Active Substance: LEVOFLOXACIN
  18. VANCOMYCIN [Concomitant]
     Active Substance: VANCOMYCIN
  19. METHOTREXATE. [Suspect]
     Active Substance: METHOTREXATE
     Indication: PROPHYLAXIS AGAINST GRAFT VERSUS HOST DISEASE
  20. METHYLPREDNISOLONE. [Suspect]
     Active Substance: METHYLPREDNISOLONE
     Dosage: 25 MG, QD
  21. MEROPENEM. [Concomitant]
     Active Substance: MEROPENEM
  22. MICAFUNGIN. [Concomitant]
     Active Substance: MICAFUNGIN SODIUM
  23. PIPERACILLIN/TAZOBACTAM [Concomitant]
     Active Substance: PIPERACILLIN SODIUM\TAZOBACTAM SODIUM
  24. ETOPOSIDE. [Concomitant]
     Active Substance: ETOPOSIDE
     Indication: BONE MARROW CONDITIONING REGIMEN
     Dosage: 30 MG/KG; CONDITIONING REGIMEN
  25. CYCLOSPORIN A [Concomitant]
     Active Substance: CYCLOSPORINE
     Indication: PROPHYLAXIS AGAINST GRAFT VERSUS HOST DISEASE
     Dosage: UNK

REACTIONS (8)
  - Abdominal pain [Recovering/Resolving]
  - Cytomegalovirus infection [Recovered/Resolved]
  - Diarrhoea [Recovering/Resolving]
  - Cytomegalovirus colitis [Recovered/Resolved]
  - Herpes zoster [Unknown]
  - Aspergillus test positive [Unknown]
  - Off label use [Unknown]
  - Pyrexia [Unknown]
